FAERS Safety Report 11467538 (Version 1)
Quarter: 2015Q3

REPORT INFORMATION
  Report Type: Spontaneous
  Country: US (occurrence: US)
  Receive Date: 20150908
  Receipt Date: 20150908
  Transmission Date: 20151125
  Serious: No
  Sender: FDA-Public Use
  Company Number: US-ASTRAZENECA-2015SE83743

PATIENT
  Age: 1107 Month
  Sex: Female
  Weight: 54.9 kg

DRUGS (1)
  1. SYMBICORT [Suspect]
     Active Substance: BUDESONIDE\FORMOTEROL FUMARATE DIHYDRATE
     Indication: SINUSITIS
     Dosage: 160/4.5 MCG, 1 PUFF, TWICE A DAY
     Route: 055
     Dates: start: 201504, end: 201508

REACTIONS (4)
  - Urticaria [Unknown]
  - Pruritus [Unknown]
  - Off label use [Recovered/Resolved]
  - Sleep disorder due to general medical condition, insomnia type [Unknown]

NARRATIVE: CASE EVENT DATE: 201504
